FAERS Safety Report 8816962 (Version 1)
Quarter: 2012Q4

REPORT INFORMATION
  Report Type: Spontaneous
  Country: US (occurrence: None)
  Receive Date: 20121003
  Receipt Date: 20121003
  Transmission Date: 20130627
  Serious: Yes (Hospitalization)
  Sender: FDA-Public Use
  Company Number: None

PATIENT
  Age: 45 Year
  Sex: Female
  Weight: 76 kg

DRUGS (2)
  1. PRALATREXATE [Suspect]
     Indication: METASTATIC COLON CANCER
     Dosage: 337 mg every 2 weeks IV
     Route: 042
  2. 5-FU [Suspect]
     Indication: METASTATIC COLON CANCER
     Dosage: 5460 mg every 2 weeks IV
     Route: 042

REACTIONS (4)
  - Abdominal pain [None]
  - Diarrhoea [None]
  - Small intestinal obstruction [None]
  - Nausea [None]
